FAERS Safety Report 9196434 (Version 2)
Quarter: 2013Q2

REPORT INFORMATION
  Report Type: Spontaneous
  Country: IT (occurrence: IT)
  Receive Date: 20130328
  Receipt Date: 20130412
  Transmission Date: 20140414
  Serious: Yes (Hospitalization, Other)
  Sender: FDA-Public Use
  Company Number: IT-PFIZER INC-2013100206

PATIENT
  Age: 74 Year
  Sex: Female
  Weight: 42 kg

DRUGS (14)
  1. EFEXOR ER [Suspect]
     Indication: DEPRESSION
     Dosage: 37.5 MG, UNK
     Route: 048
     Dates: start: 20130109, end: 20130109
  2. EFEXOR ER [Suspect]
     Dosage: 37.5 MG, 1X/DAY
     Dates: start: 20130111, end: 20130127
  3. EFEXOR ER [Suspect]
     Dosage: 75 MG, 1X/DAY
     Route: 048
     Dates: start: 20130128, end: 20130129
  4. NEUPRO [Suspect]
     Indication: PARKINSON^S DISEASE
     Dosage: 4 MG, 1X/DAY
     Route: 062
     Dates: start: 20130109, end: 20130109
  5. NEUPRO [Suspect]
     Dosage: 4 MG, 1X/DAY
     Dates: start: 20130111, end: 20130116
  6. NEUPRO [Suspect]
     Dosage: 6 MG, 1X/DAY
     Dates: start: 20130117, end: 20130121
  7. NEUPRO [Suspect]
     Dosage: 6 MG, 1X/DAY
     Dates: start: 20130123, end: 20130127
  8. NEUPRO [Suspect]
     Dosage: 8 MG, 1X/DAY
     Route: 062
     Dates: start: 20130129, end: 20130129
  9. STALEVO [Concomitant]
     Indication: PARKINSON^S DISEASE
     Dosage: 75/18, 75/200 5 TABLETS DAILY
  10. FERLIXIT [Concomitant]
     Dosage: IN SALINE SOLUTION (ON ALTERNATE DAY)
     Route: 042
  11. SINEMET [Concomitant]
     Indication: PARKINSON^S DISEASE
     Dosage: 100/25 ONE TABLET IN THE EVENING
  12. CALCITRIOL [Concomitant]
     Dosage: 0.25 ONCE A DAY
  13. HALCION [Concomitant]
     Indication: PARKINSON^S DISEASE
     Dosage: 250 MCG 1 TABLET DAILY ON THE EVENING
  14. JUMEX [Concomitant]
     Indication: DEPRESSION
     Dosage: 5 MG, 1X/DAY IN THE EVENING

REACTIONS (11)
  - Epilepsy [Recovered/Resolved]
  - Hallucination [Unknown]
  - Cachexia [Unknown]
  - Extrapyramidal disorder [Unknown]
  - Thymus disorder [Unknown]
  - Blood potassium decreased [Recovered/Resolved]
  - Dysphagia [Unknown]
  - Cholelithiasis [Unknown]
  - Dolichocolon [Unknown]
  - Renal cyst [Unknown]
  - Hepatic cyst [Unknown]
